FAERS Safety Report 10952681 (Version 11)
Quarter: 2016Q3

REPORT INFORMATION
  Report Type: Spontaneous
  Country: CA (occurrence: CA)
  Receive Date: 20150325
  Receipt Date: 20160901
  Transmission Date: 20161109
  Serious: Yes (Other)
  Sender: FDA-Public Use
  Company Number: CA-ROCHE-1555539

PATIENT
  Age: 63 Year
  Sex: Female

DRUGS (10)
  1. XOLAIR [Suspect]
     Active Substance: OMALIZUMAB
     Indication: ASTHMA
     Route: 058
     Dates: start: 20121023
  2. PREDNISONE. [Concomitant]
     Active Substance: PREDNISONE
     Indication: BRONCHITIS
     Dosage: 1 COURSE OF PREDNISONE IN THE LAST 12 MONTHS
     Route: 065
  3. SYMBICORT [Concomitant]
     Active Substance: BUDESONIDE\FORMOTEROL FUMARATE DIHYDRATE
     Indication: PRODUCT USED FOR UNKNOWN INDICATION
     Dosage: BREAKTHROUGH MORE OFTEN, UP TO 1TO 2 TIMES A DAY
     Route: 065
  4. PREDNISONE. [Concomitant]
     Active Substance: PREDNISONE
     Indication: DYSPNOEA
     Route: 065
  5. XOLAIR [Suspect]
     Active Substance: OMALIZUMAB
     Route: 058
     Dates: start: 20160427
  6. SINGULAIR [Concomitant]
     Active Substance: MONTELUKAST SODIUM
     Indication: PRODUCT USED FOR UNKNOWN INDICATION
     Route: 065
  7. PREDNISONE. [Concomitant]
     Active Substance: PREDNISONE
     Indication: ASTHMA
     Route: 065
  8. ALLERDRYL (CANADA) [Concomitant]
     Indication: DYSPNOEA
     Route: 065
  9. PREDNISONE. [Concomitant]
     Active Substance: PREDNISONE
     Indication: COUGH
     Route: 065
  10. PREDNISONE. [Concomitant]
     Active Substance: PREDNISONE
     Indication: PRODUCTIVE COUGH
     Route: 065

REACTIONS (18)
  - Gastrooesophageal reflux disease [Unknown]
  - Cystitis [Not Recovered/Not Resolved]
  - Musculoskeletal discomfort [Unknown]
  - Thermal burn [Unknown]
  - Arthralgia [Unknown]
  - Middle insomnia [Unknown]
  - Bronchitis [Unknown]
  - Asthma [Unknown]
  - Chest pain [Unknown]
  - Skin infection [Unknown]
  - Arthritis infective [Unknown]
  - Rotator cuff syndrome [Unknown]
  - Nasopharyngitis [Unknown]
  - Viral pharyngitis [Unknown]
  - Hypoaesthesia [Unknown]
  - Abasia [Unknown]
  - Postoperative wound complication [Unknown]
  - Paraesthesia [Unknown]

NARRATIVE: CASE EVENT DATE: 20141220
